FAERS Safety Report 13559608 (Version 1)
Quarter: 2017Q2

REPORT INFORMATION
  Report Type: Spontaneous
  Country: US (occurrence: US)
  Receive Date: 20170518
  Receipt Date: 20170518
  Transmission Date: 20170830
  Serious: No
  Sender: FDA-Public Use
  Company Number: US-BAYER-2017-094625

PATIENT
  Sex: Female

DRUGS (2)
  1. MIRENA [Suspect]
     Active Substance: LEVONORGESTREL
     Indication: ENDOMETRIAL HYPERPLASIA
  2. MIRENA [Suspect]
     Active Substance: LEVONORGESTREL
     Indication: HYPERPLASIA
     Dosage: 20 MCG/24HR, CONT
     Route: 015
     Dates: start: 2016

REACTIONS (3)
  - Abdominal pain [None]
  - Amenorrhoea [None]
  - Vaginal haemorrhage [None]

NARRATIVE: CASE EVENT DATE: 2016
